FAERS Safety Report 6264265-6 (Version None)
Quarter: 2009Q3

REPORT INFORMATION
  Report Type: 
  Country: None (occurrence: None)
  Receive Date: 20090710
  Receipt Date: 20090702
  Transmission Date: 20100115
  Serious: Yes (Other)
  Sender: FDA-Public Use
  Company Number: GB-BAYER-200912643BNE

PATIENT
  Age: 66 Year
  Sex: Female

DRUGS (4)
  1. SORAFENIB [Suspect]
     Indication: HEPATIC NEOPLASM MALIGNANT
     Dosage: TOTAL DAILY DOSE: 800 MG
     Route: 048
  2. BISOPROLOL FUMARATE [Concomitant]
     Indication: TACHYARRHYTHMIA
     Route: 048
  3. CO-AMILOFRUSE [Concomitant]
     Indication: OEDEMA
     Route: 048
  4. MEGACE [Concomitant]
     Indication: DRUG USE FOR UNKNOWN INDICATION
     Route: 048

REACTIONS (3)
  - CELLULITIS [None]
  - DEEP VEIN THROMBOSIS [None]
  - LEUKOCYTOCLASTIC VASCULITIS [None]
